FAERS Safety Report 11998964 (Version 1)
Quarter: 2016Q1

REPORT INFORMATION
  Report Type: Spontaneous
  Country: US (occurrence: None)
  Receive Date: 20160202
  Receipt Date: 20160202
  Transmission Date: 20160526
  Serious: Yes (Hospitalization)
  Sender: FDA-Public Use
  Company Number: None

PATIENT
  Age: 79 Year
  Sex: Male
  Weight: 83.46 kg

DRUGS (2)
  1. CABAZITAXEL 25MG/M2 TEVA [Suspect]
     Active Substance: CABAZITAXEL
     Indication: PROSTATE CANCER
     Route: 042
     Dates: start: 20150505
  2. ZYTIGA [Suspect]
     Active Substance: ABIRATERONE ACETATE
     Indication: PROSTATE CANCER
     Route: 048
     Dates: start: 20150505

REACTIONS (4)
  - Neutropenia [None]
  - Confusional state [None]
  - Dehydration [None]
  - Gait disturbance [None]

NARRATIVE: CASE EVENT DATE: 20150603
